FAERS Safety Report 4511705-6 (Version None)
Quarter: 2004Q4

REPORT INFORMATION
  Report Type: 
  Country: None (occurrence: None)
  Receive Date: 20041123
  Receipt Date: 20041123
  Transmission Date: 20050328
  Serious: Yes (Other)
  Sender: FDA-Public Use
  Company Number: None

PATIENT
  Age: 72 Year
  Sex: Male
  Weight: 104.8 kg

DRUGS (6)
  1. ZOCOR [Suspect]
  2. FOSINOPRIL SODIUM [Concomitant]
  3. HYDROCHLOROTHIAZIDE [Concomitant]
  4. PIROXICAM [Concomitant]
  5. FLUOCINOLONE ACETONIDE [Concomitant]
  6. RANITIDINE HCL [Concomitant]

REACTIONS (1)
  - RASH [None]
